FAERS Safety Report 9207098 (Version 1)
Quarter: 2013Q1

REPORT INFORMATION
  Report Type: Spontaneous
  Country: US (occurrence: None)
  Receive Date: 20120731
  Receipt Date: 20120731
  Transmission Date: 20140127
  Serious: No
  Sender: FDA-Public Use
  Company Number: 2012MZ000295

PATIENT
  Sex: Female
  Weight: 68.95 kg

DRUGS (3)
  1. XEOMIN [Suspect]
     Indication: PRODUCT USED FOR UNKNOWN INDICATION
     Dates: start: 2012, end: 2012
  2. MULTIVITAMIN [Concomitant]
  3. GLUCOPHAGE [Concomitant]

REACTIONS (1)
  - Therapeutic response decreased [None]
